FAERS Safety Report 12994297 (Version 1)
Quarter: 2016Q4

REPORT INFORMATION
  Report Type: Spontaneous
  Country: HU (occurrence: HU)
  Receive Date: 20161202
  Receipt Date: 20161202
  Transmission Date: 20170207
  Serious: Yes (Hospitalization)
  Sender: FDA-Public Use
  Company Number: HU-GE HEALTHCARE MEDICAL DIAGNOSTICS-OMPQ-PR-1611S-2203

PATIENT
  Age: 41 Year
  Sex: Female
  Weight: 64 kg

DRUGS (2)
  1. OMNIPAQUE [Suspect]
     Active Substance: IOHEXOL
     Indication: RENAL MASS
     Route: 042
     Dates: start: 20160927, end: 20160927
  2. OMNIPAQUE [Suspect]
     Active Substance: IOHEXOL
     Indication: DIAGNOSTIC PROCEDURE

REACTIONS (2)
  - Toxic skin eruption [Unknown]
  - Type IV hypersensitivity reaction [Unknown]

NARRATIVE: CASE EVENT DATE: 20160929
